FAERS Safety Report 7008403-6 (Version None)
Quarter: 2010Q3

REPORT INFORMATION
  Report Type: 
  Country: None (occurrence: None)
  Receive Date: 20100922
  Receipt Date: 20100913
  Transmission Date: 20110219
  Serious: Yes (Other)
  Sender: FDA-Public Use
  Company Number: B0674709A

PATIENT
  Sex: Female
  Weight: 60 kg

DRUGS (1)
  1. ARIXTRA [Suspect]
     Indication: THROMBOSIS PROPHYLAXIS
     Dosage: 2.5MG PER DAY
     Route: 058
     Dates: start: 20100911

REACTIONS (4)
  - FOREIGN BODY [None]
  - INCISION SITE HAEMATOMA [None]
  - OFF LABEL USE [None]
  - PRODUCT QUALITY ISSUE [None]
